FAERS Safety Report 6015374-8 (Version None)
Quarter: 2008Q4

REPORT INFORMATION
  Report Type: 
  Country: None (occurrence: None)
  Receive Date: 20081222
  Receipt Date: 20081211
  Transmission Date: 20090506
  Serious: Yes (Other)
  Sender: FDA-Public Use
  Company Number: US-BIOGENIDEC-2008BI033535

PATIENT
  Age: 16 Month
  Sex: Female

DRUGS (2)
  1. AVONEX [Suspect]
     Indication: DRUG EXPOSURE DURING PREGNANCY
     Route: 064
     Dates: start: 20050301, end: 20060601
  2. AVONEX [Suspect]
     Route: 064
     Dates: end: 20070401

REACTIONS (1)
  - NEUROBLASTOMA [None]
